FAERS Safety Report 4663345-6 (Version None)
Quarter: 2005Q2

REPORT INFORMATION
  Report Type: 
  Country: None (occurrence: None)
  Receive Date: 20050517
  Receipt Date: 20050505
  Transmission Date: 20051028
  Serious: Yes (Life-Threatening)
  Sender: FDA-Public Use
  Company Number: US-JNJFOC-20050501945

PATIENT
  Sex: Female
  Weight: 76.2 kg

DRUGS (2)
  1. TYLENOL W/ CODEINE [Suspect]
     Indication: PAIN
     Dates: start: 20030401
  2. TYLENOL (CAPLET) [Suspect]
     Indication: PAIN

REACTIONS (4)
  - AMNESIA [None]
  - ASTHENIA [None]
  - HYPERHIDROSIS [None]
  - TACHYCARDIA [None]
